FAERS Safety Report 7675353-1 (Version None)
Quarter: 2011Q3

REPORT INFORMATION
  Report Type: 
  Country: None (occurrence: None)
  Receive Date: 20110810
  Receipt Date: 20110728
  Transmission Date: 20111222
  Serious: No
  Sender: FDA-Public Use
  Company Number: US-B.I. PHARMACEUTICALS,INC./RIDGEFIELD-2011-BP-09709BP

PATIENT
  Sex: Male

DRUGS (14)
  1. POTASSIUM [Concomitant]
     Indication: CARDIAC FAILURE CONGESTIVE
     Dosage: 20 MEQ
     Route: 048
  2. SIMVASTATIN [Concomitant]
     Indication: BLOOD CHOLESTEROL INCREASED
     Dosage: 20 MG
     Route: 048
  3. FISH OIL [Concomitant]
     Route: 048
  4. NAPROXEN [Concomitant]
     Indication: ARTHRITIS
     Dosage: 1000 MG
     Route: 048
  5. LASIX [Concomitant]
     Indication: CARDIAC FAILURE CONGESTIVE
     Dosage: 40 MG
     Route: 048
     Dates: start: 20000101
  6. VESICARE [Concomitant]
     Indication: BENIGN PROSTATIC HYPERPLASIA
     Dosage: 5 MG
     Route: 048
  7. BENACAR [Concomitant]
     Indication: HYPERTENSION
     Dosage: 40 MG
     Route: 048
     Dates: start: 20000101
  8. VITAMIN TAB [Concomitant]
     Route: 048
  9. ASPIRIN [Concomitant]
     Indication: ATRIAL FIBRILLATION
     Dosage: 81 MG
     Route: 048
  10. BYSTOLIC [Concomitant]
     Indication: HYPERTENSION
     Dosage: 5 MG
     Route: 048
     Dates: start: 20000101
  11. THYROID SUPPRESSANT [Concomitant]
     Indication: HYPERTHYROIDISM
     Dosage: 20 MG
     Route: 048
  12. LASIX [Concomitant]
     Indication: HYPERTENSION
  13. PROTONIX [Concomitant]
     Indication: GASTROOESOPHAGEAL REFLUX DISEASE
     Dosage: 40 MG
     Route: 048
  14. PRADAXA [Suspect]
     Indication: ATRIAL FIBRILLATION
     Dosage: 300 MG
     Route: 048
     Dates: start: 20101201

REACTIONS (2)
  - RASH [None]
  - AMNESIA [None]
